FAERS Safety Report 20607546 (Version 1)
Quarter: 2022Q1

REPORT INFORMATION
  Report Type: Spontaneous
  Country: None (occurrence: GB)
  Receive Date: 20220317
  Receipt Date: 20220317
  Transmission Date: 20220423
  Serious: Yes (Hospitalization)
  Sender: FDA-Public Use
  Company Number: GB-B.Braun Medical Inc.-2126886

PATIENT
  Sex: Male

DRUGS (9)
  1. METRONIDAZOLE [Suspect]
     Active Substance: METRONIDAZOLE
  2. VEDOLIZUMAB [Suspect]
     Active Substance: VEDOLIZUMAB
  3. Adcal [Concomitant]
  4. AZATHIOPRINE [Concomitant]
     Active Substance: AZATHIOPRINE
  5. FOLIC ACID [Concomitant]
     Active Substance: FOLIC ACID
  6. INFLIXIMAB [Concomitant]
     Active Substance: INFLIXIMAB
  7. PREDNISOLONE [Concomitant]
     Active Substance: PREDNISOLONE
  8. SULFASALAZINE [Concomitant]
     Active Substance: SULFASALAZINE
  9. ADALIMUMAB [Concomitant]
     Active Substance: ADALIMUMAB

REACTIONS (3)
  - Sepsis [Recovered/Resolved]
  - Fistula [Recovered/Resolved]
  - Infusion related reaction [Recovered/Resolved]
